FAERS Safety Report 7044518-4 (Version None)
Quarter: 2010Q4

REPORT INFORMATION
  Report Type: 
  Country: None (occurrence: None)
  Receive Date: 20101013
  Receipt Date: 20101013
  Transmission Date: 20110411
  Serious: Yes (Hospitalization)
  Sender: FDA-Public Use
  Company Number: None

PATIENT
  Age: 56 Year
  Sex: Female
  Weight: 59.9 kg

DRUGS (8)
  1. ZOSYN [Suspect]
     Indication: CHOLANGITIS
     Dosage: 4.5 G 1 DOSE IV
     Route: 042
     Dates: start: 20100718
  2. PROGRAF [Concomitant]
  3. ALBUTEROL [Concomitant]
  4. MULTI-VITAMIN [Concomitant]
  5. LANTUS [Concomitant]
  6. CALCIUM CITRATE [Concomitant]
  7. CIPROFLOXACIN [Concomitant]
  8. METRONIDAZOLE [Concomitant]

REACTIONS (13)
  - ABDOMINAL PAIN UPPER [None]
  - CHEST PAIN [None]
  - ELECTROCARDIOGRAM Q WAVES [None]
  - HYPERHIDROSIS [None]
  - HYPOTENSION [None]
  - INFUSION RELATED REACTION [None]
  - MALAISE [None]
  - OXYGEN SATURATION DECREASED [None]
  - PRURITUS [None]
  - PYREXIA [None]
  - RASH ERYTHEMATOUS [None]
  - SKIN BURNING SENSATION [None]
  - THROAT IRRITATION [None]
